FAERS Safety Report 22908471 (Version 6)
Quarter: 2024Q4

REPORT INFORMATION
  Report Type: Spontaneous
  Country: US (occurrence: US)
  Receive Date: 20230905
  Receipt Date: 20241206
  Transmission Date: 20250114
  Serious: No
  Sender: PFIZER
  Company Number: US-PFIZER INC-PV202300149472

PATIENT
  Age: 83 Year
  Sex: Female

DRUGS (2)
  1. IBRANCE [Suspect]
     Active Substance: PALBOCICLIB
     Indication: Breast cancer metastatic
     Dosage: 125 MG
  2. IBRANCE [Suspect]
     Active Substance: PALBOCICLIB
     Dosage: TAKE 1 TAB DAILY FOR 21 DAYS THEN STOP FOR 7 DAYS. AVOID GRAPEFRUIT PRODUCTS. SWALLOW WHOLE
     Route: 048

REACTIONS (2)
  - Decreased appetite [Unknown]
  - Product prescribing issue [Unknown]
